FAERS Safety Report 24962109 (Version 1)
Quarter: 2025Q1

REPORT INFORMATION
  Report Type: Spontaneous
  Country: JP (occurrence: JP)
  Receive Date: 20250212
  Receipt Date: 20250212
  Transmission Date: 20250409
  Serious: Yes (Other)
  Sender: BAUSCH AND LOMB
  Company Number: JP-BAUSCH-BL-2025-001825

PATIENT
  Sex: Male

DRUGS (8)
  1. DEXAMETHASONE [Suspect]
     Active Substance: DEXAMETHASONE
     Indication: Pleural effusion
     Route: 065
  2. TOCILIZUMAB [Suspect]
     Active Substance: TOCILIZUMAB
     Indication: Cytokine release syndrome
     Route: 065
  3. TOCILIZUMAB [Suspect]
     Active Substance: TOCILIZUMAB
     Indication: Pleural effusion
  4. EPCORITAMAB [Concomitant]
     Active Substance: EPCORITAMAB
     Indication: Diffuse large B-cell lymphoma
  5. EPCORITAMAB [Concomitant]
     Active Substance: EPCORITAMAB
  6. EPCORITAMAB [Concomitant]
     Active Substance: EPCORITAMAB
  7. EPCORITAMAB [Concomitant]
     Active Substance: EPCORITAMAB
  8. EPCORITAMAB [Concomitant]
     Active Substance: EPCORITAMAB

REACTIONS (1)
  - Therapy non-responder [Unknown]
